FAERS Safety Report 5146813-2 (Version None)
Quarter: 2006Q4

REPORT INFORMATION
  Report Type: 
  Country: None (occurrence: None)
  Receive Date: 20061102
  Receipt Date: 20061023
  Transmission Date: 20070319
  Serious: Yes (Hospitalization)
  Sender: FDA-Public Use
  Company Number: 2006S1000178

PATIENT
  Age: 43 Year
  Sex: Male
  Weight: 82 kg

DRUGS (7)
  1. CUBICIN [Suspect]
     Indication: OSTEOMYELITIS
     Dosage: 500 MG; Q24H; IV
     Route: 042
  2. VANCOMYCIN [Concomitant]
  3. ZOSYN [Concomitant]
  4. AUGMENTIN '125' [Concomitant]
  5. CIPROFLOXACIN [Concomitant]
  6. OXYCODONE HCL [Concomitant]
  7. MORPHINE [Concomitant]

REACTIONS (7)
  - CRYPTOGENIC ORGANISING PNEUMONIA [None]
  - HAEMATOCRIT DECREASED [None]
  - PLEURITIC PAIN [None]
  - PNEUMONITIS [None]
  - PULMONARY EOSINOPHILIA [None]
  - REFUSAL OF TREATMENT BY PATIENT [None]
  - WEIGHT DECREASED [None]
